FAERS Safety Report 4639176-X (Version None)
Quarter: 2005Q2

REPORT INFORMATION
  Report Type: 
  Country: None (occurrence: None)
  Receive Date: 20050418
  Receipt Date: 20050407
  Transmission Date: 20051028
  Serious: Yes (Hospitalization)
  Sender: FDA-Public Use
  Company Number: 200510020BYL

PATIENT
  Age: 65 Year
  Sex: Female
  Weight: 52.5 kg

DRUGS (2)
  1. ASPIRIN [Suspect]
     Indication: CEREBRAL INFARCTION
     Dosage: 100 MG, OM, ORAL
     Route: 048
     Dates: start: 20041221, end: 20050105
  2. ASPIRIN [Suspect]
     Indication: PROPHYLAXIS
     Dosage: 100 MG, OM, ORAL
     Route: 048
     Dates: start: 20041221, end: 20050105

REACTIONS (2)
  - ASTHMA [None]
  - CEREBRAL INFARCTION [None]
